FAERS Safety Report 7972228-5 (Version None)
Quarter: 2011Q4

REPORT INFORMATION
  Report Type: 
  Country: None (occurrence: None)
  Receive Date: 20111213
  Receipt Date: 20111206
  Transmission Date: 20120403
  Serious: Yes (Hospitalization)
  Sender: FDA-Public Use
  Company Number: US-AMGEN-USASP2011064944

PATIENT
  Age: 45 Year
  Sex: Male

DRUGS (1)
  1. ENBREL [Suspect]
     Indication: RHEUMATOID ARTHRITIS
     Dosage: 50 MG, QWK
     Dates: start: 20100101

REACTIONS (5)
  - EAR INFECTION [None]
  - LOSS OF CONSCIOUSNESS [None]
  - SKIN FISSURES [None]
  - INJECTION SITE PAIN [None]
  - PHARYNGITIS STREPTOCOCCAL [None]
